FAERS Safety Report 21382349 (Version 7)
Quarter: 2023Q1

REPORT INFORMATION
  Report Type: Report from Study
  Country: CN (occurrence: None)
  Receive Date: 20220927
  Receipt Date: 20230319
  Transmission Date: 20230418
  Serious: Yes (Hospitalization)
  Sender: FDA-Public Use
  Company Number: CN-ROCHE-3184316

PATIENT
  Age: 59 Year
  Sex: Male
  Weight: 85 kg

DRUGS (16)
  1. OBINUTUZUMAB [Suspect]
     Active Substance: OBINUTUZUMAB
     Indication: Follicular lymphoma
     Dosage: LAST DOSE PRIOR TO SAE 15/JUL/2022
     Route: 042
     Dates: start: 20201006
  2. OBINUTUZUMAB [Suspect]
     Active Substance: OBINUTUZUMAB
     Indication: Haemostasis
  3. OBINUTUZUMAB [Suspect]
     Active Substance: OBINUTUZUMAB
     Indication: Procedural pain
  4. ZANUBRUTINIB [Suspect]
     Active Substance: ZANUBRUTINIB
     Indication: Follicular lymphoma
     Dosage: LAST DOSE PRIOR TO SAE 08/OCT/2022
     Route: 048
     Dates: start: 20201006
  5. ZANUBRUTINIB [Suspect]
     Active Substance: ZANUBRUTINIB
     Indication: Haemostasis
  6. CEFUROXIME SODIUM [Concomitant]
     Active Substance: CEFUROXIME SODIUM
     Route: 042
     Dates: start: 20220907, end: 20220911
  7. ACETAMINOPHEN [Concomitant]
     Active Substance: ACETAMINOPHEN
     Dates: start: 20220907, end: 20220907
  8. DEXTROSE\SODIUM CHLORIDE [Concomitant]
     Active Substance: DEXTROSE\SODIUM CHLORIDE
     Route: 042
     Dates: start: 20220908, end: 20220908
  9. CARBAZOCHROME SODIUM SULFONATE [Concomitant]
     Active Substance: CARBAZOCHROME SODIUM SULFONATE
     Indication: Haemostasis
     Route: 042
     Dates: start: 20220908, end: 20220908
  10. FLURBIPROFEN AXETIL [Concomitant]
     Active Substance: FLURBIPROFEN AXETIL
     Dosage: INTRAOPERATIVE AND POSTOPERATIVE ANALGESIA
     Route: 042
     Dates: start: 20220908, end: 20220909
  11. OXYCODONE AND ACETAMINOPHEN [Concomitant]
     Active Substance: ACETAMINOPHEN\OXYCODONE HYDROCHLORIDE
     Route: 048
     Dates: start: 20220908, end: 20220914
  12. DIOSMIN [Concomitant]
     Active Substance: DIOSMIN
     Route: 048
     Dates: start: 20220909, end: 20220921
  13. CEFUROXIME AXETIL [Concomitant]
     Active Substance: CEFUROXIME AXETIL
     Route: 048
     Dates: start: 20220909, end: 20220914
  14. ACETAMINOPHEN\TRAMADOL HYDROCHLORIDE [Concomitant]
     Active Substance: ACETAMINOPHEN\TRAMADOL HYDROCHLORIDE
     Indication: Procedural pain
     Route: 048
     Dates: start: 20220914, end: 20220916
  15. POLYETHYLENE GLYCOL ELECTROLYTES [Concomitant]
     Route: 042
     Dates: start: 20220909, end: 20220921
  16. GLYCERIN [Concomitant]
     Active Substance: GLYCERIN
     Dates: start: 20220911, end: 20220921

REACTIONS (2)
  - Anal abscess [Recovered/Resolved]
  - Haemorrhoids [Recovered/Resolved]

NARRATIVE: CASE EVENT DATE: 20220906
